FAERS Safety Report 8345407-5 (Version None)
Quarter: 2012Q2

REPORT INFORMATION
  Report Type: 
  Country: None (occurrence: None)
  Receive Date: 20120508
  Receipt Date: 20120503
  Transmission Date: 20120825
  Serious: Yes (Hospitalization, Other)
  Sender: FDA-Public Use
  Company Number: BR-PFIZER INC-2012108614

PATIENT
  Age: 69 Year
  Sex: Female

DRUGS (6)
  1. OLCADIL [Concomitant]
     Indication: SLEEP DISORDER
  2. ATORVASTATIN CALCIUM [Suspect]
     Dosage: UNK
     Route: 048
     Dates: start: 20120301
  3. ASPIRIN [Concomitant]
     Indication: CARDIAC DISORDER
  4. PANTOPRAZOLE [Concomitant]
     Indication: GASTRIC DISORDER
  5. LIPITOR [Suspect]
     Indication: BLOOD CHOLESTEROL INCREASED
     Dosage: 20 MG, 1X/DAY
     Route: 048
  6. LOSARTAN POTASSIUM [Concomitant]
     Indication: HYPERTENSION

REACTIONS (4)
  - DRUG INEFFECTIVE [None]
  - HEART INJURY [None]
  - CARDIAC FAILURE [None]
  - INFARCTION [None]
